FAERS Safety Report 5168243-X (Version None)
Quarter: 2006Q4

REPORT INFORMATION
  Report Type: 
  Country: None (occurrence: None)
  Receive Date: 20061208
  Receipt Date: 20061204
  Transmission Date: 20070319
  Serious: Yes (Other)
  Sender: FDA-Public Use
  Company Number: IE-GLAXOSMITHKLINE-B0449685A

PATIENT
  Age: 65 Year
  Sex: Male

DRUGS (5)
  1. AUGMENTIN '125' [Suspect]
     Indication: TOOTH INFECTION
     Route: 048
  2. PRAVASTATIN SODIUM [Concomitant]
     Route: 065
  3. RAMIPRIL [Concomitant]
     Route: 065
  4. CAPTOPRIL [Concomitant]
     Route: 065
  5. ELTROXIN [Concomitant]
     Route: 065

REACTIONS (1)
  - HEPATITIS CHOLESTATIC [None]
